FAERS Safety Report 20016226 (Version 1)
Quarter: 2021Q4

REPORT INFORMATION
  Report Type: Spontaneous
  Country: US (occurrence: None)
  Receive Date: 20211103
  Receipt Date: 20211103
  Transmission Date: 20220303
  Serious: Yes (Hospitalization)
  Sender: FDA-Public Use
  Company Number: None

PATIENT
  Age: 30 Year
  Sex: Female
  Weight: 56.6 kg

DRUGS (9)
  1. CYCLOPHOSPHAMIDE [Suspect]
     Active Substance: CYCLOPHOSPHAMIDE
     Dates: end: 20210927
  2. CYTARABINE [Suspect]
     Active Substance: CYTARABINE
     Dates: end: 20211007
  3. DEXAMETHASONE [Suspect]
     Active Substance: DEXAMETHASONE
     Dates: end: 20210919
  4. DOXORUBICIN HYDROCHLORIDE [Suspect]
     Active Substance: DOXORUBICIN HYDROCHLORIDE
     Dates: end: 20210913
  5. METHOTREXATE [Suspect]
     Active Substance: METHOTREXATE
     Dates: end: 20211004
  6. ONCASPAR [Suspect]
     Active Substance: PEGASPARGASE
     Dates: end: 20210915
  7. RITUXIMAB [Suspect]
     Active Substance: RITUXIMAB
     Dates: end: 20210823
  8. THIOGUANINE ANHYDROUS [Suspect]
     Active Substance: THIOGUANINE ANHYDROUS
     Dates: end: 20211010
  9. VINCRISTINE SULFATE [Suspect]
     Active Substance: VINCRISTINE SULFATE
     Dates: end: 20211011

REACTIONS (8)
  - Febrile neutropenia [None]
  - Cholecystitis acute [None]
  - Therapy interrupted [None]
  - Platelet count decreased [None]
  - Haemoglobin decreased [None]
  - Blood culture positive [None]
  - Escherichia test positive [None]
  - Catheter site discharge [None]

NARRATIVE: CASE EVENT DATE: 20211015
